FAERS Safety Report 9640749 (Version 1)
Quarter: 2013Q4

REPORT INFORMATION
  Report Type: Spontaneous
  Country: US (occurrence: None)
  Receive Date: 20131021
  Receipt Date: 20131021
  Transmission Date: 20140711
  Serious: Yes (Hospitalization)
  Sender: FDA-Public Use
  Company Number: AUR-APL-2013-08447

PATIENT
  Age: 54 Year
  Sex: Male

DRUGS (4)
  1. RIBAVIRIN [Suspect]
     Indication: INFECTION
     Dates: start: 200906
  2. PEGINTERFERON ALFA-2B (PEGINTERFERON ALFA-2B) [Suspect]
     Indication: INFECTION
     Dates: start: 200906
  3. BOCEPREVIR [Suspect]
     Indication: HEPATITIS C
  4. TACROLIMUS [Suspect]
     Indication: HEPATITIS C

REACTIONS (12)
  - Chronic hepatitis C [None]
  - Disease progression [None]
  - Liver transplant [None]
  - Hepatitis C [None]
  - Hepatic fibrosis [None]
  - Anaemia [None]
  - Syncope [None]
  - Hepatic cirrhosis [None]
  - Portal hypertension [None]
  - Varices oesophageal [None]
  - Hepatic encephalopathy [None]
  - Ascites [None]
